FAERS Safety Report 6982799-3 (Version None)
Quarter: 2010Q3

REPORT INFORMATION
  Report Type: 
  Country: None (occurrence: None)
  Receive Date: 20100914
  Receipt Date: 20100409
  Transmission Date: 20110219
  Serious: Yes (Other)
  Sender: FDA-Public Use
  Company Number: US-PFIZER INC-2010046029

PATIENT
  Sex: Female

DRUGS (2)
  1. LYRICA [Suspect]
     Indication: ATONIC SEIZURES
     Dosage: UNK
  2. LYRICA [Suspect]
     Indication: FRONTAL LOBE EPILEPSY

REACTIONS (2)
  - POLLAKIURIA [None]
  - URINARY INCONTINENCE [None]
